FAERS Safety Report 6838818-8 (Version None)
Quarter: 2010Q3

REPORT INFORMATION
  Report Type: 
  Country: None (occurrence: None)
  Receive Date: 20100709
  Receipt Date: 20100622
  Transmission Date: 20110219
  Serious: Yes (Life-Threatening, Hospitalization, Disabling, Other)
  Sender: FDA-Public Use
  Company Number: 1000014183

PATIENT
  Sex: Male
  Weight: 3.05 kg

DRUGS (1)
  1. DINOPROSTONE (DINOPROSTONE) [Suspect]
     Dosage: 10 MG, D, TRANSPLACENTAL
     Route: 064
     Dates: start: 20100516, end: 20100516

REACTIONS (6)
  - APGAR SCORE LOW [None]
  - CAESAREAN SECTION [None]
  - CEREBRAL PALSY [None]
  - FOETAL HEART RATE DECREASED [None]
  - MATERNAL DRUGS AFFECTING FOETUS [None]
  - RESUSCITATION [None]
